FAERS Safety Report 5002015-1 (Version None)
Quarter: 2006Q2

REPORT INFORMATION
  Report Type: 
  Country: None (occurrence: None)
  Receive Date: 20060515
  Receipt Date: 20060310
  Transmission Date: 20061013
  Serious: Yes (Disabling)
  Sender: FDA-Public Use
  Company Number: NO-ROCHE-439772

PATIENT
  Age: 80 Year
  Sex: Female

DRUGS (5)
  1. BONIVA [Suspect]
     Indication: OSTEOPOROSIS
     Route: 048
     Dates: start: 20060202
  2. CARDIZEM [Concomitant]
     Dosage: FORMULATION: DEPOT TABLETS. DOSAGE REGIMEN REPORTED AS 120 MG NOS.
     Route: 048
  3. INDERAL RETARD [Concomitant]
     Dosage: FORMULATION: DEPOT TABLETS.
     Route: 048
  4. MAREVAN [Concomitant]
     Route: 048
  5. DIURAL [Concomitant]
     Dosage: DOSAGE REGIMEN REPORTED AS 20 MG NOS.
     Route: 048

REACTIONS (12)
  - ABDOMINAL PAIN [None]
  - DECREASED APPETITE [None]
  - DEMENTIA [None]
  - DEPRESSION [None]
  - DIARRHOEA [None]
  - DIZZINESS [None]
  - FATIGUE [None]
  - FEELING ABNORMAL [None]
  - MALAISE [None]
  - NAUSEA [None]
  - PAIN [None]
  - PYREXIA [None]
